FAERS Safety Report 6417579-0 (Version None)
Quarter: 2009Q4

REPORT INFORMATION
  Report Type: 
  Country: None (occurrence: None)
  Receive Date: 20091028
  Receipt Date: 20091015
  Transmission Date: 20100525
  Serious: Yes (Other)
  Sender: FDA-Public Use
  Company Number: GB-ROCHE-663405

PATIENT
  Age: 12 Year
  Sex: Male

DRUGS (4)
  1. TAMIFLU [Suspect]
     Route: 065
     Dates: start: 20091012
  2. AMOXICILLIN [Suspect]
     Route: 065
     Dates: start: 20091012
  3. SIMPLE LINCTUS [Concomitant]
     Dosage: DRUG: SIMPLE LINCTUS BP
  4. SUDAFED 12 HOUR [Concomitant]

REACTIONS (2)
  - ABDOMINAL PAIN UPPER [None]
  - VISUAL IMPAIRMENT [None]
